FAERS Safety Report 10746110 (Version 2)
Quarter: 2015Q1

REPORT INFORMATION
  Report Type: Spontaneous
  Country: US (occurrence: US)
  Receive Date: 20150128
  Receipt Date: 20150213
  Transmission Date: 20150721
  Serious: Yes (Other)
  Sender: FDA-Public Use
  Company Number: US-LUNDBECK-DKLU1107964

PATIENT
  Age: 21 Year
  Sex: Female

DRUGS (7)
  1. SABRIL [Suspect]
     Active Substance: VIGABATRIN
     Indication: EPILEPSY
     Route: 065
     Dates: start: 20150115
  2. TRILEPTAL [Concomitant]
     Active Substance: OXCARBAZEPINE
     Indication: PRODUCT USED FOR UNKNOWN INDICATION
  3. DILANTIN [Concomitant]
     Active Substance: PHENYTOIN
     Indication: PRODUCT USED FOR UNKNOWN INDICATION
  4. SABRIL [Suspect]
     Active Substance: VIGABATRIN
     Indication: COMPLEX PARTIAL SEIZURES
     Route: 065
     Dates: start: 20150106
  5. TOPAMAX [Concomitant]
     Active Substance: TOPIRAMATE
     Indication: PRODUCT USED FOR UNKNOWN INDICATION
  6. KLONOPIN [Concomitant]
     Active Substance: CLONAZEPAM
     Indication: PRODUCT USED FOR UNKNOWN INDICATION
  7. SABRIL [Suspect]
     Active Substance: VIGABATRIN
     Indication: EPILEPSY
     Route: 048
     Dates: start: 20150106

REACTIONS (2)
  - Generalised tonic-clonic seizure [Unknown]
  - Seizure [Unknown]

NARRATIVE: CASE EVENT DATE: 20150115
